FAERS Safety Report 18215769 (Version 1)
Quarter: 2020Q3

REPORT INFORMATION
  Report Type: Report from Study
  Country: None (occurrence: US)
  Receive Date: 20200831
  Receipt Date: 20200831
  Transmission Date: 20201103
  Serious: Yes (Hospitalization)
  Sender: FDA-Public Use
  Company Number: US-ABBVIE-20K-163-3546524-00

PATIENT
  Age: 46 Year
  Sex: Male

DRUGS (2)
  1. CREON [Suspect]
     Active Substance: PANCRELIPASE AMYLASE\PANCRELIPASE LIPASE\PANCRELIPASE PROTEASE
     Indication: DYSPEPSIA
     Dosage: 3 CAPSULES A DAY. ONE WITH EACH MEAL.
     Route: 048
     Dates: start: 2015
  2. ENSURE [Concomitant]
     Active Substance: AMINO ACIDS\DEXTROSE\ELECTROLYTES NOS\SOYBEAN OIL\VITAMINS
     Indication: PRODUCT USED FOR UNKNOWN INDICATION

REACTIONS (11)
  - Pancreatitis [Unknown]
  - Dyspepsia [Recovering/Resolving]
  - Pancreatic enzymes increased [Recovering/Resolving]
  - Abdominal discomfort [Unknown]
  - Flatulence [Unknown]
  - Hypertension [Unknown]
  - Headache [Unknown]
  - Abdominal distension [Unknown]
  - Hunger [Unknown]
  - Asthenia [Not Recovered/Not Resolved]
  - Pancreatic disorder [Unknown]

NARRATIVE: CASE EVENT DATE: 202008
